FAERS Safety Report 5778926-6 (Version None)
Quarter: 2008Q2

REPORT INFORMATION
  Report Type: 
  Country: None (occurrence: None)
  Receive Date: 20080619
  Receipt Date: 20080612
  Transmission Date: 20081010
  Serious: Yes (Hospitalization)
  Sender: FDA-Public Use
  Company Number: US-BRISTOL-MYERS SQUIBB COMPANY-14226492

PATIENT
  Age: 46 Year
  Sex: Female
  Weight: 47 kg

DRUGS (4)
  1. ERBITUX [Suspect]
     Indication: ADENOCARCINOMA OF THE CERVIX
     Dosage: INITIAL LOADING DOSE:400MG/M2 SUBSEQUENT DOSES:250MG/M2 1ST COURSE STARTED:29FEB08
     Route: 042
     Dates: start: 20080229
  2. CISPLATIN [Suspect]
     Indication: ADENOCARCINOMA OF THE CERVIX
     Dosage: DAY 1 AND 8(30MG/M2) 1ST COURSE STARTED:29FEB08
     Dates: start: 20080229
  3. LORTAB [Concomitant]
     Indication: PAIN
     Dosage: 1-2 TABLETS Q8H PRN.
  4. OXYCONTIN [Concomitant]
     Route: 048

REACTIONS (1)
  - KIDNEY INFECTION [None]
